FAERS Safety Report 18813473 (Version 1)
Quarter: 2021Q1

REPORT INFORMATION
  Report Type: Spontaneous
  Country: DE (occurrence: DE)
  Receive Date: 20210201
  Receipt Date: 20210201
  Transmission Date: 20210419
  Serious: Yes (Death, Life-Threatening, Hospitalization, Other)
  Sender: FDA-Public Use
  Company Number: DE-AMGEN-DEUSP2021012309

PATIENT
  Age: 7 Year
  Sex: Male

DRUGS (1)
  1. BLINATUMOMAB [Suspect]
     Active Substance: BLINATUMOMAB
     Indication: B PRECURSOR TYPE ACUTE LEUKAEMIA
     Dosage: UNK
     Route: 065

REACTIONS (9)
  - Cerebral haemorrhage [Unknown]
  - Embolism [Unknown]
  - Intracranial pressure increased [Unknown]
  - Flank pain [Unknown]
  - Cardiac failure [Unknown]
  - Brain herniation [Fatal]
  - Disseminated mucormycosis [Fatal]
  - Bone marrow failure [Unknown]
  - Acute respiratory failure [Unknown]
